FAERS Safety Report 9670136 (Version 2)
Quarter: 2013Q4

REPORT INFORMATION
  Report Type: Report from Study
  Country: US (occurrence: US)
  Receive Date: 20131105
  Receipt Date: 20131122
  Transmission Date: 20140711
  Serious: Yes (Hospitalization)
  Sender: FDA-Public Use
  Company Number: US-ACTELION-A-US2013-90534

PATIENT
  Age: 46 Year
  Sex: Female

DRUGS (2)
  1. VELETRI [Suspect]
     Indication: PULMONARY ARTERIAL HYPERTENSION
     Dosage: 47 UNK, UNK
     Route: 042
     Dates: start: 20111220
  2. LETAIRIS [Concomitant]

REACTIONS (3)
  - Abasia [Unknown]
  - Haemorrhage [Unknown]
  - Asthenia [Unknown]
